FAERS Safety Report 4627360-0 (Version None)
Quarter: 2005Q1

REPORT INFORMATION
  Report Type: 
  Country: None (occurrence: None)
  Receive Date: 20050331
  Receipt Date: 20050324
  Transmission Date: 20050727
  Serious: Yes (Hospitalization, Disabling)
  Sender: FDA-Public Use
  Company Number: 2005-03-1719

PATIENT
  Age: 65 Year
  Sex: Male
  Weight: 56 kg

DRUGS (5)
  1. PEG-INTRON [Suspect]
     Indication: HEPATITIS C
     Dosage: 60 MCG QW SUBCUTANEOUS
     Route: 058
     Dates: start: 20050112, end: 20050316
  2. REBETOL [Suspect]
     Indication: HEPATITIS C
     Dosage: 600 MG ORAL
     Route: 048
     Dates: start: 20050112, end: 20050321
  3. URSO 250 [Concomitant]
  4. NIFEDIPINE [Concomitant]
  5. LAC B [Concomitant]

REACTIONS (3)
  - ABASIA [None]
  - BALANCE DISORDER [None]
  - DEAFNESS UNILATERAL [None]
